FAERS Safety Report 18230101 (Version 1)
Quarter: 2020Q3

REPORT INFORMATION
  Report Type: Report from Study
  Country: US (occurrence: US)
  Receive Date: 20200903
  Receipt Date: 20200903
  Transmission Date: 20201103
  Serious: Yes (Hospitalization)
  Sender: FDA-Public Use
  Company Number: US-FERRINGPH-2020FE05831

PATIENT
  Age: 29 Year

DRUGS (1)
  1. DESMOPRESSIN [Suspect]
     Active Substance: DESMOPRESSIN
     Indication: PRODUCT USED FOR UNKNOWN INDICATION
     Route: 065

REACTIONS (8)
  - Abdominal pain upper [Unknown]
  - Blood sodium decreased [Unknown]
  - Haematemesis [Unknown]
  - Headache [Unknown]
  - Seizure [Unknown]
  - Haematemesis [Unknown]
  - Recalled product administered [Unknown]
  - Out of specification product use [Unknown]

NARRATIVE: CASE EVENT DATE: 201710
